FAERS Safety Report 7506504-7 (Version None)
Quarter: 2011Q2

REPORT INFORMATION
  Report Type: 
  Country: None (occurrence: None)
  Receive Date: 20110526
  Receipt Date: 20110510
  Transmission Date: 20111010
  Serious: Yes (Other)
  Sender: FDA-Public Use
  Company Number: US-BAYER-201035087NA

PATIENT
  Age: 18 Year
  Sex: Female
  Weight: 68.027 kg

DRUGS (12)
  1. YASMIN [Suspect]
     Indication: ENDOMETRIOSIS
  2. YAZ [Suspect]
     Indication: MENSTRUAL CYCLE MANAGEMENT
     Dates: start: 20070601, end: 20090101
  3. METOCLOPRAMIDE [Concomitant]
  4. YASMIN [Suspect]
     Indication: MENSTRUATION IRREGULAR
     Dates: start: 20070601, end: 20090101
  5. ALLEGRA [Concomitant]
  6. YAZ [Suspect]
     Indication: CONTRACEPTION
  7. YAZ [Suspect]
     Indication: ENDOMETRIOSIS
  8. YASMIN [Suspect]
     Indication: CONTRACEPTION
  9. PREDNISONE [Concomitant]
  10. CITALOPRAM HYDROBROMIDE [Concomitant]
     Indication: DEPRESSION
  11. SEASONALE [Concomitant]
     Indication: ENDOMETRIOSIS
  12. ALLEGRA D 24 HOUR [Concomitant]
     Indication: MULTIPLE ALLERGIES

REACTIONS (3)
  - CHOLECYSTITIS CHRONIC [None]
  - PAIN [None]
  - GALLBLADDER DISORDER [None]
